FAERS Safety Report 8066893-4 (Version None)
Quarter: 2012Q1

REPORT INFORMATION
  Report Type: 
  Country: None (occurrence: None)
  Receive Date: 20120124
  Receipt Date: 20110921
  Transmission Date: 20120608
  Serious: Yes (Death)
  Sender: FDA-Public Use
  Company Number: US-ROCHE-GNE324803

PATIENT
  Sex: Male
  Weight: 99.88 kg

DRUGS (5)
  1. NOVOLIN 70/30 [Concomitant]
  2. PLAVIX [Concomitant]
  3. PANTOPRAZOLE [Concomitant]
  4. NOVOLOG [Concomitant]
  5. ACTIVASE [Suspect]
     Indication: ISCHAEMIC STROKE
     Dosage: ONCE
     Route: 042
     Dates: start: 20110722

REACTIONS (1)
  - VENTRICULAR FIBRILLATION [None]
